FAERS Safety Report 8663055 (Version 2)
Quarter: 2017Q3

REPORT INFORMATION
  Report Type: Spontaneous
  Country: DE (occurrence: DE)
  Receive Date: 20120713
  Receipt Date: 20170913
  Transmission Date: 20171128
  Serious: Yes (Hospitalization, Other)
  Sender: FDA-Public Use
  Company Number: DE-AMGEN-DEUSP2012042754

PATIENT
  Sex: Female

DRUGS (27)
  1. CYCLOPHOSPHAMIDE. [Suspect]
     Active Substance: CYCLOPHOSPHAMIDE
     Indication: B-CELL LYMPHOMA
     Dosage: 1425 MG, 1 IN 14 D
     Route: 042
     Dates: start: 20120612
  2. ALIZAPRIDE [Concomitant]
     Active Substance: ALIZAPRIDE
     Dosage: UNK (2 MG (DAY 2,3) 300 MG, DAY 4-6)
     Route: 048
     Dates: start: 20120613
  3. PARACETAMOL [Concomitant]
     Active Substance: ACETAMINOPHEN
     Dosage: 1000 MG, QD
     Route: 048
     Dates: start: 20120611
  4. TORASEMID [Concomitant]
     Active Substance: TORSEMIDE
     Dosage: UNK
     Route: 048
     Dates: start: 20120629
  5. VINCRISTINE [Suspect]
     Active Substance: VINCRISTINE
     Indication: B-CELL LYMPHOMA
     Dosage: 3.84 MG, 1 IN 14 D
     Route: 065
     Dates: start: 20120612
  6. SULPHAMETHIZOLE [Concomitant]
     Dosage: 1920 MG, UNK (DAY 1-4)
     Route: 048
     Dates: start: 20120612
  7. POTASSIUM [Concomitant]
     Active Substance: POTASSIUM
     Dosage: 40 MMOL, UNK
     Route: 048
     Dates: start: 20120622, end: 20120626
  8. OLMESARTAN [Concomitant]
     Active Substance: OLMESARTAN
     Dosage: 20 MG, QD
     Route: 048
  9. DOXORUBICIN [Suspect]
     Active Substance: DOXORUBICIN
     Indication: B-CELL LYMPHOMA
     Dosage: 95 MG, 1 IN 14 D
     Route: 042
     Dates: start: 20120612
  10. LEVOFLOXACIN. [Concomitant]
     Active Substance: LEVOFLOXACIN
     Dosage: 500 MG, QD
     Dates: start: 20120617, end: 20120622
  11. BISOPROLOL [Concomitant]
     Active Substance: BISOPROLOL
     Dosage: UNK (5/12.5 MG/DAY (500 MG))
     Route: 048
     Dates: start: 20120617, end: 20120622
  12. PEGFILGRASTIM [Suspect]
     Active Substance: PEGFILGRASTIM
     Indication: B-CELL LYMPHOMA
     Dosage: 6 MG, UNK (DAY 4)
     Route: 058
     Dates: start: 20120615
  13. PREDNISOLONE. [Suspect]
     Active Substance: PREDNISOLONE
     Indication: B-CELL LYMPHOMA
     Dosage: 100 MG, UNK (DAY 0-4)
     Route: 065
     Dates: start: 20120611
  14. CLEMASTIN [Concomitant]
     Active Substance: CLEMASTINE
     Dosage: 2 MG, UNK (DAY 0)
     Route: 042
     Dates: start: 20120611
  15. ACICLOVIR [Concomitant]
     Active Substance: ACYCLOVIR
     Dosage: 1600 MG, UNK (DAY 1-4)
     Route: 048
     Dates: start: 20120612
  16. ALLOPURINOL. [Concomitant]
     Active Substance: ALLOPURINOL
     Dosage: 150 MG, QD
     Route: 048
     Dates: start: 20120612
  17. TRIMETHOPRIM. [Concomitant]
     Active Substance: TRIMETHOPRIM
     Dosage: 1920 MG, UNK (DAY 1-4)
     Route: 048
     Dates: start: 20120612
  18. DIAZEPAM. [Concomitant]
     Active Substance: DIAZEPAM
     Dosage: UNK
     Route: 048
  19. OPIPRAMOL HYDROCHLORIDE [Concomitant]
     Active Substance: OPIPRAMOL HYDROCHLORIDE
     Dosage: 50 MG, QD
     Route: 048
  20. RITUXIMAB. [Suspect]
     Active Substance: RITUXIMAB
     Indication: B-CELL LYMPHOMA
     Dosage: 700 MG, QID
     Route: 042
     Dates: start: 20120611
  21. NITRENDIPIN [Concomitant]
     Active Substance: NITRENDIPINE
     Dosage: 40 MMOL, QD
     Route: 048
  22. BUTYLSCOPOLAMINE [Concomitant]
     Active Substance: BUTYLSCOPOLAMINE
     Dosage: UNK
     Route: 054
     Dates: start: 20120629
  23. CARBAMAZEPIN [Concomitant]
     Active Substance: CARBAMAZEPINE
     Dosage: 900 MG, UNK
     Route: 048
  24. GRANISETRON [Concomitant]
     Active Substance: GRANISETRON
     Dosage: 1 MG, UNK (DAY 1)
     Dates: start: 20120612
  25. RANITIDINE. [Concomitant]
     Active Substance: RANITIDINE
     Dosage: 50 MG, UNK
     Route: 042
     Dates: start: 20120611
  26. SIMVASTATIN. [Concomitant]
     Active Substance: SIMVASTATIN
     Dosage: 40 MMOL, QD
     Route: 048
  27. DIPYRONE [Concomitant]
     Active Substance: DIPYRONE
     Dosage: UNK
     Route: 048

REACTIONS (2)
  - Presyncope [Recovered/Resolved]
  - Intestinal haemorrhage [Unknown]

NARRATIVE: CASE EVENT DATE: 20120630
